FAERS Safety Report 19494693 (Version 1)
Quarter: 2021Q3

REPORT INFORMATION
  Report Type: Report from Study
  Country: US (occurrence: US)
  Receive Date: 20210705
  Receipt Date: 20210705
  Transmission Date: 20211014
  Serious: Yes (Other)
  Sender: FDA-Public Use
  Company Number: US-AGIOS-2106US02920

PATIENT

DRUGS (1)
  1. TIBSOVO [Suspect]
     Active Substance: IVOSIDENIB
     Indication: CHOLANGIOCARCINOMA
     Dosage: 250 MILLIGRAM, 2 TABLETS (500 MG), QD
     Route: 048
     Dates: start: 202106

REACTIONS (5)
  - Decreased appetite [Unknown]
  - Product dose omission issue [Unknown]
  - Fatigue [Unknown]
  - Off label use [Unknown]
  - Hepatic failure [Unknown]

NARRATIVE: CASE EVENT DATE: 202106
